FAERS Safety Report 25859250 (Version 2)
Quarter: 2025Q4

REPORT INFORMATION
  Report Type: Report from Study
  Country: EG (occurrence: EG)
  Receive Date: 20250929
  Receipt Date: 20251007
  Transmission Date: 20260118
  Serious: Yes (Death, Hospitalization, Other)
  Sender: PFIZER
  Company Number: EG-TAKEDA-2025TUS083118

PATIENT
  Age: 59 Year
  Sex: Female

DRUGS (4)
  1. ADCETRIS [Suspect]
     Active Substance: BRENTUXIMAB VEDOTIN
     Indication: Anaplastic large cell lymphoma T- and null-cell types
     Dosage: 150 MILLIGRAM, 3/WEEK (50 MG PER VIAL, 3 VIALS EVERY 3 WEEKS-8 CYCLES)
     Route: 042
     Dates: start: 20250720, end: 20250720
  2. DOXORUBICIN [Suspect]
     Active Substance: DOXORUBICIN
     Indication: Anaplastic large cell lymphoma T- and null-cell types
     Dosage: UNK
  3. PREDNISONE [Suspect]
     Active Substance: PREDNISONE
     Indication: Anaplastic large cell lymphoma T- and null-cell types
     Dosage: UNK
  4. CYCLOPHOSPHAMIDE [Suspect]
     Active Substance: CYCLOPHOSPHAMIDE
     Indication: Anaplastic large cell lymphoma T- and null-cell types
     Dosage: UNK

REACTIONS (2)
  - Sepsis [Fatal]
  - Urinary tract infection [Recovered/Resolved]

NARRATIVE: CASE EVENT DATE: 20250904
